FAERS Safety Report 5032786-X (Version None)
Quarter: 2006Q2

REPORT INFORMATION
  Report Type: 
  Country: None (occurrence: None)
  Receive Date: 20060620
  Receipt Date: 20060620
  Transmission Date: 20061013
  Serious: Yes (Hospitalization)
  Sender: FDA-Public Use
  Company Number: None

PATIENT
  Age: 67 Year
  Sex: Female
  Weight: 101.6057 kg

DRUGS (2)
  1. LIPITOR [Suspect]
     Indication: DYSLIPIDAEMIA
     Dosage: 20 MG QHS PO
     Route: 048
     Dates: start: 20050601, end: 20060509
  2. DEPAKOTE [Suspect]
     Indication: CONVULSION
     Dosage: 500 MG QAM 1000 MG QPM BID PO
     Route: 048

REACTIONS (8)
  - COUGH [None]
  - DRUG INTERACTION [None]
  - DYSPNOEA [None]
  - ORAL INTAKE REDUCED [None]
  - PAIN [None]
  - PYREXIA [None]
  - RHABDOMYOLYSIS [None]
  - URINARY TRACT INFECTION [None]
